FAERS Safety Report 7815175-1 (Version None)
Quarter: 2011Q4

REPORT INFORMATION
  Report Type: 
  Country: None (occurrence: None)
  Receive Date: 20111014
  Receipt Date: 20111011
  Transmission Date: 20120403
  Serious: Yes (Life-Threatening, Hospitalization)
  Sender: FDA-Public Use
  Company Number: US-JNJFOC-20111005066

PATIENT
  Age: 17 Year
  Sex: Male

DRUGS (2)
  1. ULTRAM [Suspect]
     Indication: EUPHORIC MOOD
     Dosage: 7 TABLETS OF 50 MG
     Route: 048
     Dates: start: 20110421, end: 20110421
  2. MARIJUANA [Suspect]
     Indication: PRODUCT USED FOR UNKNOWN INDICATION
     Route: 065

REACTIONS (9)
  - FEELING HOT [None]
  - OVERDOSE [None]
  - HYPERTENSION [None]
  - TACHYCARDIA [None]
  - HYPERHIDROSIS [None]
  - CONVULSION [None]
  - BLOOD GLUCOSE ABNORMAL [None]
  - SOMNOLENCE [None]
  - INTENTIONAL DRUG MISUSE [None]
